FAERS Safety Report 10407280 (Version 3)
Quarter: 2015Q2

REPORT INFORMATION
  Report Type: Spontaneous
  Country: US (occurrence: US)
  Receive Date: 20140825
  Receipt Date: 20150619
  Transmission Date: 20150821
  Serious: No
  Sender: FDA-Public Use
  Company Number: US-PFIZER INC-2014235770

PATIENT
  Age: 65 Year
  Sex: Female
  Weight: 71 kg

DRUGS (18)
  1. AMLODIPINE [Concomitant]
     Active Substance: AMLODIPINE BESYLATE
     Indication: HYPERTENSION
     Dosage: 5 MG, 1X/DAY
  2. VITAMIN E [Concomitant]
     Active Substance: .ALPHA.-TOCOPHEROL
     Dosage: 2 DF, 1X/DAY (800 UNITS)
  3. ZANAFLEX [Concomitant]
     Active Substance: TIZANIDINE HYDROCHLORIDE
     Indication: MUSCLE RELAXANT THERAPY
     Dosage: 4 MG, AS NEEDED (EVERY 6 HOURS)
  4. XELJANZ [Suspect]
     Active Substance: TOFACITINIB CITRATE
     Indication: SJOGREN^S SYNDROME
     Dosage: 5 MG, 2X/DAY
     Route: 048
     Dates: start: 20140604, end: 201407
  5. XELJANZ [Suspect]
     Active Substance: TOFACITINIB CITRATE
     Indication: JOINT SWELLING
  6. LISINOPRIL. [Concomitant]
     Active Substance: LISINOPRIL
     Indication: HYPERTENSION
     Dosage: 20 MG, 1X/DAY
  7. XANAX [Concomitant]
     Active Substance: ALPRAZOLAM
     Indication: DEPRESSION
     Dosage: 1 MG, 2X/DAY
  8. ESTRADIOL. [Concomitant]
     Active Substance: ESTRADIOL
     Indication: HORMONE THERAPY
     Dosage: 1 MG, 1X/DAY
  9. OXYCODONE [Concomitant]
     Active Substance: OXYCODONE
     Dosage: UNK (10-325MG EVERY 6 HOURS/4 A DAY/A LOT OF TIMES DON^T TAKE 4 A DAY)
  10. CENTRUM 50+ [Concomitant]
     Active Substance: VITAMINS
     Dosage: UNK
  11. DULOXETINE [Concomitant]
     Active Substance: DULOXETINE
     Indication: FIBROMYALGIA
     Dosage: 60 MG, 1X/DAY
  12. FLAXSEED [Concomitant]
     Active Substance: FLAX SEED
     Dosage: 1200 MG, 1X/DAY
  13. VITAMIN D [Concomitant]
     Active Substance: CHOLECALCIFEROL
     Dosage: 400 IU, 1X/DAY
  14. XELJANZ [Suspect]
     Active Substance: TOFACITINIB CITRATE
     Indication: ARTHRALGIA
     Dosage: 5 MG, 2X/DAY
     Route: 048
     Dates: start: 20140717, end: 20140817
  15. ZANTAC [Concomitant]
     Active Substance: RANITIDINE HYDROCHLORIDE
     Indication: OROPHARYNGEAL PAIN
     Dosage: UNK
  16. OSTEO BI-FLEX [Concomitant]
     Active Substance: CHONDROITIN SULFATE A\GLUCOSAMINE
     Dosage: UNK UNK, 1X/DAY
  17. BILBERRY [Concomitant]
     Active Substance: BILBERRY
     Dosage: UNK, 1X/DAY
  18. OSCAL ULTRA [Concomitant]
     Dosage: UNK UNK, 1X/DAY (600-200)

REACTIONS (6)
  - Muscle disorder [Unknown]
  - Pain [Recovering/Resolving]
  - Musculoskeletal pain [Unknown]
  - Dry eye [Unknown]
  - Malaise [Unknown]
  - Off label use [Unknown]

NARRATIVE: CASE EVENT DATE: 201408
